FAERS Safety Report 15230030 (Version 1)
Quarter: 2018Q3

REPORT INFORMATION
  Report Type: Spontaneous
  Country: US (occurrence: US)
  Receive Date: 20180802
  Receipt Date: 20180802
  Transmission Date: 20181010
  Serious: Yes (Other)
  Sender: FDA-Public Use
  Company Number: US-ACCORD-062736

PATIENT
  Age: 53 Year
  Sex: Female
  Weight: 92.53 kg

DRUGS (26)
  1. PARAPLATIN [Suspect]
     Active Substance: CARBOPLATIN
     Indication: BREAST CANCER
     Dates: start: 20151020, end: 20160113
  2. ZITHROMAX [Concomitant]
     Active Substance: AZITHROMYCIN DIHYDRATE
     Dosage: STRENGTH: 250 MG?TAKE TWO TABLETS BY MOUTH THE FIRST DAY AND THEN ONE TABLET DAILY FOR 4 DAYS
     Route: 048
  3. ANASTROZOLE. [Concomitant]
     Active Substance: ANASTROZOLE
     Dates: start: 20160101
  4. ERGOCALCIFEROL. [Concomitant]
     Active Substance: ERGOCALCIFEROL
  5. PYRIDOXINE [Concomitant]
     Active Substance: PYRIDOXINE
  6. RETINOL [Concomitant]
     Active Substance: RETINOL
  7. ZYRTEC [Concomitant]
     Active Substance: CETIRIZINE HYDROCHLORIDE
     Route: 048
     Dates: start: 20070101
  8. DOCETAXEL ACCORD [Suspect]
     Active Substance: DOCETAXEL
     Indication: BREAST CANCER
     Dosage: 75 MG EVERY 3 WEEKS
     Route: 042
     Dates: start: 20151020, end: 20160113
  9. TRASTUZUMAB. [Suspect]
     Active Substance: TRASTUZUMAB
     Indication: BREAST CANCER
     Dates: start: 20151020, end: 20160113
  10. ASCORBIC ACID. [Concomitant]
     Active Substance: ASCORBIC ACID
     Dosage: STRENGTH: 125 MG?TAKE BY MOUTH ONCE DAILY
     Route: 048
  11. LASIX [Concomitant]
     Active Substance: FUROSEMIDE
     Dosage: STRENGTH: 20 MG?TAKE 1 TABLET BY MOUTH ONCE DAILY
     Route: 048
  12. CYANOCOBALAMIN. [Concomitant]
     Active Substance: CYANOCOBALAMIN
     Dosage: STRENGTH: 1000 MCG?TAKE 1 TABLET BY MOUTH ONCE DAILY
     Route: 048
  13. ALKA?SELTZER PLUS COLD [Concomitant]
     Active Substance: ACETAMINOPHEN\CHLORPHENIRAMINE MALEATE\PHENYLEPHRINE HYDROCHLORIDE
     Dosage: TAKE BY MOUTH TWICE DAILY AS NEEDED
     Route: 048
  14. OCUVITE [Concomitant]
     Active Substance: VITAMINS
     Dosage: TAKE 1 TABLET BY MOUTH ONCE DAILY
     Route: 048
  15. IRON [Concomitant]
     Active Substance: IRON
     Dosage: STRENGTH: 325 MG?TAKE 1 TABLET THREE TIMES DAILY WITH MEALS
     Route: 048
  16. COMPAZINE [Concomitant]
     Active Substance: PROCHLORPERAZINE MALEATE
     Dosage: STRENGTH: 10 MG?TAKE 1 TABLET BY MOUTH EVERY 6 HOURS AS NEEDED
     Route: 048
  17. FIBER [Concomitant]
     Active Substance: PSYLLIUM HUSK
     Dosage: STRENGTH: 2 GM?TAKE BY MOUTH
     Route: 048
  18. PROTONIX [Concomitant]
     Active Substance: PANTOPRAZOLE SODIUM
     Dosage: TAKE BY MOUTH ONCE DAILY
     Route: 048
  19. EMLA [Concomitant]
     Active Substance: LIDOCAINE\PRILOCAINE
     Dosage: APPLY ONE SMALL DOLLOP OVER MEDIPORT ONE HOUR PRIOR TO PROCEDURE
  20. COLECALCIFEROL [Concomitant]
     Active Substance: CHOLECALCIFEROL
     Dosage: STRENGTH: 5000 UNIT TAB?TAKE 5000 UNITES BY MOUTH ONCE DAILY
     Route: 048
  21. DECADRON [Concomitant]
     Active Substance: DEXAMETHASONE
     Dosage: STRENGTH: 4 MG?TAKE ONE TABLET EVERY 12 HOURS THE DAY BEFORE AND DAY AFTER CHEMOTHERAPY
  22. ZOFRAN [Concomitant]
     Active Substance: ONDANSETRON HYDROCHLORIDE
     Dosage: STRENGTH: 8 MG?TAKE 1 TABLET BY MOUTH EVERY 8 HOURS AS NEEDED
     Route: 048
  23. MUCINEX [Concomitant]
     Active Substance: GUAIFENESIN
     Dosage: STRENGTH: 600 MG 12 HR TABLET?TAKE 1200 MG BY MOUTH TWICE DAILY AS NEEDED
     Route: 048
  24. BIOTIN [Concomitant]
     Active Substance: BIOTIN
     Route: 048
  25. OMEGA?3 FATTY ACIDS [Concomitant]
     Active Substance: OMEGA-3 FATTY ACIDS
     Dosage: STRENGTH: 500 MG?TAKE ONE DAILY
     Route: 048
  26. MYCOSTATIN [Concomitant]
     Active Substance: NYSTATIN
     Dosage: STRENGTH: 100000 UNIT/ML?TAKE 5 ML BY MOUTH FOUR TIMES DAILY
     Route: 048

REACTIONS (1)
  - Alopecia [Recovering/Resolving]
